FAERS Safety Report 4766824-6 (Version None)
Quarter: 2005Q3

REPORT INFORMATION
  Report Type: 
  Country: None (occurrence: None)
  Receive Date: 20050912
  Receipt Date: 20050829
  Transmission Date: 20060218
  Serious: Yes (Disabling)
  Sender: FDA-Public Use
  Company Number: HQWYE294421JUL04

PATIENT
  Age: 84 Year
  Sex: Female
  Weight: 74.91 kg

DRUGS (6)
  1. CORDARONE [Suspect]
     Indication: ATRIAL FIBRILLATION
     Dosage: SEE IMAGE
     Route: 048
     Dates: start: 20020801, end: 20020901
  2. CORDARONE [Suspect]
     Indication: ATRIAL FIBRILLATION
     Dosage: SEE IMAGE
     Route: 048
     Dates: start: 20020901, end: 20021201
  3. CORDARONE [Suspect]
     Indication: ATRIAL FIBRILLATION
     Dosage: SEE IMAGE
     Route: 048
     Dates: start: 20021201, end: 20030101
  4. CORDARONE [Suspect]
     Indication: ATRIAL FIBRILLATION
     Dosage: SEE IMAGE
     Route: 048
     Dates: start: 20030101, end: 20030701
  5. SYNTHROID [Concomitant]
  6. ALLOPURINOL [Concomitant]

REACTIONS (23)
  - ANXIETY [None]
  - ASTHENIA [None]
  - BALANCE DISORDER [None]
  - BLOOD CHOLESTEROL INCREASED [None]
  - BLOOD GLUCOSE INCREASED [None]
  - BLOOD HOMOCYSTEINE INCREASED [None]
  - BLOOD THYROID STIMULATING HORMONE INCREASED [None]
  - C-REACTIVE PROTEIN INCREASED [None]
  - CARDIOACTIVE DRUG LEVEL BELOW THERAPEUTIC [None]
  - CONFUSIONAL STATE [None]
  - CONSTIPATION [None]
  - DIFFICULTY IN WALKING [None]
  - DROOLING [None]
  - HALO VISION [None]
  - MUSCULAR WEAKNESS [None]
  - NEURITIS [None]
  - OEDEMA PERIPHERAL [None]
  - PAIN IN EXTREMITY [None]
  - SKIN PAPILLOMA [None]
  - SLEEP DISORDER [None]
  - VISUAL DISTURBANCE [None]
  - VITAMIN B12 INCREASED [None]
  - WEIGHT INCREASED [None]
